FAERS Safety Report 8114223-1 (Version None)
Quarter: 2012Q1

REPORT INFORMATION
  Report Type: 
  Country: None (occurrence: None)
  Receive Date: 20120205
  Receipt Date: 20120126
  Transmission Date: 20120608
  Serious: Yes (Other)
  Sender: FDA-Public Use
  Company Number: JP-BRISTOL-MYERS SQUIBB COMPANY-15680283

PATIENT
  Age: 41 Year
  Sex: Female

DRUGS (3)
  1. LENDORMIN [Concomitant]
     Dosage: TABS
     Dates: start: 20100501
  2. ABILIFY [Suspect]
     Indication: SCHIZOPHRENIA, CATATONIC TYPE
     Dosage: MAY10 12MG/D INTERRRUPT ON 29-SEP2011,RESUMED ON 30SEP2011:6MG BID ORAL
     Route: 048
     Dates: start: 20100521
  3. ABILIFY [Suspect]
     Indication: SCHIZOPHRENIA
     Dosage: 21-23MAY2010(3D);24MAY-22JUN2010(12MG)
     Route: 048
     Dates: start: 20100521

REACTIONS (4)
  - PREMATURE LABOUR [None]
  - TREMOR [None]
  - LIVE BIRTH [None]
  - PREGNANCY [None]
